FAERS Safety Report 24603022 (Version 1)
Quarter: 2024Q4

REPORT INFORMATION
  Report Type: Spontaneous
  Country: US (occurrence: US)
  Receive Date: 20241111
  Receipt Date: 20241111
  Transmission Date: 20250115
  Serious: Yes (Other)
  Sender: MYLAN
  Company Number: US-MYLANLABS-2024M1099780

PATIENT
  Age: 27 Year
  Sex: Male

DRUGS (6)
  1. PREDNISONE [Suspect]
     Active Substance: PREDNISONE
     Indication: Rash pruritic
     Dosage: UNK; DOSE NOT STATED
     Route: 065
  2. PREDNISONE [Suspect]
     Active Substance: PREDNISONE
     Indication: Dermatitis exfoliative generalised
     Dosage: UNK; DOSE TAPERED
     Route: 065
  3. PREDNISONE [Suspect]
     Active Substance: PREDNISONE
     Indication: Drug eruption
  4. TRIAMCINOLONE [Suspect]
     Active Substance: TRIAMCINOLONE
     Indication: Dermatitis exfoliative generalised
     Dosage: UNK
     Route: 061
  5. TRIAMCINOLONE [Suspect]
     Active Substance: TRIAMCINOLONE
     Indication: Drug eruption
  6. CEPHALEXIN [Concomitant]
     Active Substance: CEPHALEXIN
     Indication: Staphylococcal bacteraemia
     Dosage: UNK
     Route: 048

REACTIONS (4)
  - Rebound effect [Unknown]
  - Rash pruritic [Unknown]
  - Condition aggravated [Unknown]
  - Drug ineffective [Unknown]
